FAERS Safety Report 5686785-5 (Version None)
Quarter: 2008Q1

REPORT INFORMATION
  Report Type: 
  Country: None (occurrence: None)
  Receive Date: 20080328
  Receipt Date: 20070516
  Transmission Date: 20080703
  Serious: No
  Sender: FDA-Public Use
  Company Number: US-BAYER-US-2007-017666

PATIENT
  Age: 37 Year
  Sex: Female
  Weight: 77 kg

DRUGS (3)
  1. MIRENA [Suspect]
     Indication: MENORRHAGIA
     Route: 015
     Dates: start: 20061206, end: 20070515
  2. FEM-CON [Concomitant]
     Dates: start: 20070514
  3. PROGESTERONE [Concomitant]
     Route: 048
     Dates: start: 20070514, end: 20070514

REACTIONS (2)
  - INTRA-UTERINE CONTRACEPTIVE DEVICE EXPELLED [None]
  - MENORRHAGIA [None]
